FAERS Safety Report 4988182-4 (Version None)
Quarter: 2006Q2

REPORT INFORMATION
  Report Type: 
  Country: None (occurrence: None)
  Receive Date: 20060501
  Receipt Date: 20060405
  Transmission Date: 20061013
  Serious: Yes (Hospitalization)
  Sender: FDA-Public Use
  Company Number: US-MERCK-0604USA00645

PATIENT
  Age: 66 Year
  Sex: Male
  Weight: 102 kg

DRUGS (6)
  1. PRINIVIL [Concomitant]
     Indication: MUSCULOSKELETAL DISCOMFORT
     Route: 048
     Dates: start: 19990101, end: 20040101
  2. FUROSEMIDE [Concomitant]
     Route: 065
  3. DILTIAZEM HYDROCHLORIDE [Concomitant]
     Route: 065
  4. METOPROLOL [Concomitant]
     Route: 065
  5. ULTRACET [Concomitant]
     Route: 065
  6. VIOXX [Suspect]
     Indication: ARTHRALGIA
     Route: 048
     Dates: end: 20040101

REACTIONS (2)
  - ANXIETY [None]
  - MYOCARDIAL INFARCTION [None]
